FAERS Safety Report 23967301 (Version 2)
Quarter: 2024Q2

REPORT INFORMATION
  Report Type: Other
  Country: US (occurrence: US)
  Receive Date: 20240612
  Receipt Date: 20240612
  Transmission Date: 20240715
  Serious: Yes (Hospitalization)
  Sender: FDA-Public Use
  Company Number: US-HLS-202400165

PATIENT
  Age: 30 Year
  Sex: Male

DRUGS (2)
  1. CLOZAPINE [Suspect]
     Active Substance: CLOZAPINE
     Indication: Schizophrenia
     Dosage: DRUG RESTARTED
     Route: 065
  2. CLOZAPINE [Suspect]
     Active Substance: CLOZAPINE
     Indication: Schizophrenia
     Dosage: AT BEDTIME
     Route: 065

REACTIONS (3)
  - Drug level increased [Recovering/Resolving]
  - Pleural effusion [Recovering/Resolving]
  - Somnolence [Recovering/Resolving]
